FAERS Safety Report 6204406-X (Version None)
Quarter: 2009Q2

REPORT INFORMATION
  Report Type: 
  Country: None (occurrence: None)
  Receive Date: 20090527
  Receipt Date: 20090525
  Transmission Date: 20091009
  Serious: Yes (Hospitalization)
  Sender: FDA-Public Use
  Company Number: AU-BRISTOL-MYERS SQUIBB COMPANY-14636880

PATIENT
  Age: 70 Year
  Sex: Male

DRUGS (1)
  1. IRBESARTAN [Suspect]
     Indication: ESSENTIAL HYPERTENSION
     Dosage: 1 DF= 1 DOSE
     Route: 048
     Dates: start: 20070829, end: 20071009

REACTIONS (2)
  - CONFUSIONAL STATE [None]
  - HYPONATRAEMIA [None]
